FAERS Safety Report 25893989 (Version 2)
Quarter: 2025Q4

REPORT INFORMATION
  Report Type: Spontaneous
  Country: US (occurrence: US)
  Receive Date: 20251008
  Receipt Date: 20251201
  Transmission Date: 20260117
  Serious: Yes (Other)
  Sender: JOHNSON AND JOHNSON
  Company Number: US-JNJFOC-20250946036

PATIENT
  Age: 3 Decade
  Sex: Male

DRUGS (3)
  1. SPRAVATO [Suspect]
     Active Substance: ESKETAMINE
     Indication: Depression
     Dosage: ^56 MG, 1 TOTAL DOSE^
     Route: 045
     Dates: start: 20230811, end: 20230811
  2. SPRAVATO [Suspect]
     Active Substance: ESKETAMINE
     Indication: Post-traumatic stress disorder
     Dosage: ^84 MG, 14 TOTAL DOSES^
     Route: 045
     Dates: start: 20230815, end: 20240830
  3. ABILIFY [Concomitant]
     Active Substance: ARIPIPRAZOLE
     Indication: Product used for unknown indication

REACTIONS (8)
  - Neuroleptic malignant syndrome [Unknown]
  - Tardive dyskinesia [Unknown]
  - Neuropathy peripheral [Unknown]
  - Electric shock sensation [Unknown]
  - Trigeminal neuralgia [Unknown]
  - Musculoskeletal disorder [Unknown]
  - Product dose omission issue [Unknown]
  - Blood pressure increased [Unknown]
